FAERS Safety Report 5228780-6 (Version None)
Quarter: 2007Q1

REPORT INFORMATION
  Report Type: 
  Country: None (occurrence: None)
  Receive Date: 20070131
  Receipt Date: 20070119
  Transmission Date: 20070707
  Serious: Yes (Hospitalization)
  Sender: FDA-Public Use
  Company Number: SU-2007-005809

PATIENT
  Age: 81 Year
  Sex: Female
  Weight: 56.6996 kg

DRUGS (7)
  1. BENICAR [Suspect]
     Indication: BLOOD PRESSURE
     Dosage: 20 MG QD PO
     Route: 048
  2. PROCARDIA XL [Suspect]
     Indication: BLOOD PRESSURE
     Dosage: 30 MG QD PO
     Route: 048
     Dates: start: 20060101
  3. TOPROL-XL [Concomitant]
  4. NOVOLIN 70/30 [Concomitant]
  5. SYNTHROID [Concomitant]
  6. LIPITOR [Concomitant]
  7. ZYRTEC [Concomitant]

REACTIONS (2)
  - BLOOD PRESSURE INCREASED [None]
  - OEDEMA [None]
